FAERS Safety Report 24397216 (Version 2)
Quarter: 2024Q4

REPORT INFORMATION
  Report Type: Report from Study
  Country: US (occurrence: US)
  Receive Date: 20241004
  Receipt Date: 20241010
  Transmission Date: 20250115
  Serious: No
  Sender: SANOFI AVENTIS
  Company Number: US-SA-2024SA284215

PATIENT
  Age: 75 Year
  Sex: Female

DRUGS (6)
  1. DUPILUMAB [Suspect]
     Active Substance: DUPILUMAB
     Indication: Asthma
     Dosage: 600 MG, 1X
     Route: 058
     Dates: start: 20240910, end: 20240910
  2. DUPILUMAB [Suspect]
     Active Substance: DUPILUMAB
     Dosage: 300 MG, QOW
     Route: 058
     Dates: start: 202409
  3. FASENRA [Concomitant]
     Active Substance: BENRALIZUMAB
     Dosage: UNK
  4. DOXYCYCLINE HYCLATE [Concomitant]
     Active Substance: DOXYCYCLINE HYCLATE
     Dosage: UNK
  5. MELOXICAM [Concomitant]
     Active Substance: MELOXICAM
  6. MUCINEX [Concomitant]
     Active Substance: GUAIFENESIN

REACTIONS (3)
  - Asthma [Not Recovered/Not Resolved]
  - Accidental exposure to product [Unknown]
  - Exposure via skin contact [Unknown]

NARRATIVE: CASE EVENT DATE: 20240901
